FAERS Safety Report 18172426 (Version 3)
Quarter: 2023Q2

REPORT INFORMATION
  Report Type: Spontaneous
  Country: US (occurrence: US)
  Receive Date: 20200820
  Receipt Date: 20230404
  Transmission Date: 20230721
  Serious: No
  Sender: FDA-Public Use
  Company Number: US-GILEAD-2020-0490168

PATIENT
  Age: 48 Year
  Sex: Female
  Weight: 99.773 kg

DRUGS (29)
  1. ATRIPLA [Suspect]
     Active Substance: EFAVIRENZ\EMTRICITABINE\TENOFOVIR DISOPROXIL FUMARATE
     Indication: HIV infection
     Dosage: 200 MG/ 300 MG
     Route: 048
     Dates: start: 2001
  2. ATRIPLA [Suspect]
     Active Substance: EFAVIRENZ\EMTRICITABINE\TENOFOVIR DISOPROXIL FUMARATE
     Dosage: UNK
     Route: 048
     Dates: start: 200701, end: 201705
  3. ATRIPLA [Suspect]
     Active Substance: EFAVIRENZ\EMTRICITABINE\TENOFOVIR DISOPROXIL FUMARATE
     Dosage: UNK
     Route: 048
     Dates: start: 200701, end: 201606
  4. VIREAD [Suspect]
     Active Substance: TENOFOVIR DISOPROXIL FUMARATE
     Indication: HIV infection
     Dosage: 300 MG
     Route: 048
     Dates: start: 2001
  5. VIREAD [Suspect]
     Active Substance: TENOFOVIR DISOPROXIL FUMARATE
     Dosage: UNK
     Route: 065
     Dates: start: 200505, end: 200707
  6. VIREAD [Suspect]
     Active Substance: TENOFOVIR DISOPROXIL FUMARATE
     Dosage: UNK
     Route: 048
     Dates: start: 200101, end: 200701
  7. VIREAD [Suspect]
     Active Substance: TENOFOVIR DISOPROXIL FUMARATE
     Dosage: UNK
     Route: 048
     Dates: start: 200505, end: 200701
  8. EPIVIR [Concomitant]
     Active Substance: LAMIVUDINE
  9. ODEFSEY [Concomitant]
     Active Substance: EMTRICITABINE\RILPIVIRINE HYDROCHLORIDE\TENOFOVIR ALAFENAMIDE FUMARATE
  10. SUSTIVA [Concomitant]
     Active Substance: EFAVIRENZ
  11. ATOVAQUONE [Concomitant]
     Active Substance: ATOVAQUONE
  12. BETAMETHASONE [Concomitant]
     Active Substance: BETAMETHASONE
  13. BUPROPION [Concomitant]
     Active Substance: BUPROPION
  14. COMBIVIR [Concomitant]
     Active Substance: LAMIVUDINE\ZIDOVUDINE
  15. CYCLOBENZAPRINE [Concomitant]
     Active Substance: CYCLOBENZAPRINE
  16. EFAVIRENZ [Concomitant]
     Active Substance: EFAVIRENZ
  17. ETODOLAC [Concomitant]
     Active Substance: ETODOLAC
  18. FAMCICLOVIR [Concomitant]
     Active Substance: FAMCICLOVIR
  19. GABAPENTIN [Concomitant]
     Active Substance: GABAPENTIN
  20. GUAIFENESIN [Concomitant]
     Active Substance: GUAIFENESIN
  21. IBUPROFEN [Concomitant]
     Active Substance: IBUPROFEN
  22. LAMIVUDINE [Concomitant]
     Active Substance: LAMIVUDINE
  23. METHYLPREDNISOLONE [Concomitant]
     Active Substance: METHYLPREDNISOLONE
  24. PRAVASTATIN [Concomitant]
     Active Substance: PRAVASTATIN
  25. PSEUDOEPHEDRINE [Concomitant]
     Active Substance: PSEUDOEPHEDRINE
  26. RANITIDINE [Concomitant]
     Active Substance: RANITIDINE
  27. STAVUDINE [Concomitant]
     Active Substance: STAVUDINE
  28. TRAMADOL [Concomitant]
     Active Substance: TRAMADOL
  29. TRAZODONE [Concomitant]
     Active Substance: TRAZODONE HYDROCHLORIDE

REACTIONS (6)
  - Osteopenia [Not Recovered/Not Resolved]
  - Pain [Not Recovered/Not Resolved]
  - Anxiety [Not Recovered/Not Resolved]
  - Anhedonia [Not Recovered/Not Resolved]
  - Injury [Unknown]
  - Bone density decreased [Unknown]

NARRATIVE: CASE EVENT DATE: 20080801
